FAERS Safety Report 5051052-X (Version None)
Quarter: 2006Q2

REPORT INFORMATION
  Report Type: 
  Country: None (occurrence: None)
  Receive Date: 20060614
  Receipt Date: 20060313
  Transmission Date: 20061013
  Serious: Yes (Other)
  Sender: FDA-Public Use
  Company Number: 440315

PATIENT
  Sex: Female

DRUGS (3)
  1. BONIVA [Suspect]
     Indication: OSTEOPOROSIS
     Dosage: 150 MG    1 PER MONTH    ORAL
     Route: 048
     Dates: start: 20060101, end: 20060215
  2. OMEGA            (CONVALLARIA/CRATEGUS/PROXPHYLLINE) [Concomitant]
  3. CENTRUM (MINERALS NOS/MULTIVITAMIN NOS) [Concomitant]

REACTIONS (2)
  - CHOLELITHIASIS [None]
  - LIVER FUNCTION TEST ABNORMAL [None]
